FAERS Safety Report 7462760-5 (Version None)
Quarter: 2011Q1

REPORT INFORMATION
  Report Type: 
  Country: None (occurrence: None)
  Receive Date: 20110302
  Receipt Date: 20100706
  Transmission Date: 20110831
  Serious: Yes (Other)
  Sender: FDA-Public Use
  Company Number: 163-21880-10032028

PATIENT
  Age: 89 Year
  Sex: Male
  Weight: 103.4201 kg

DRUGS (15)
  1. CALCIUM-VITAMIN D2 (CALCIUM D3 ^STADA^) [Concomitant]
  2. PRAVASTATIN [Concomitant]
  3. VICODIN [Concomitant]
  4. METAMUCIL (ISPAGHULA) [Concomitant]
  5. PRINZIDE [Concomitant]
  6. ACETAMINOPHEN [Concomitant]
  7. ASPIRIN [Concomitant]
  8. MULTIVITAMIN [Concomitant]
  9. REVLIMID [Suspect]
     Indication: MULTIPLE MYELOMA
     Dosage: 25 MG, DAILY X 21 DAYS EVERY 28 DAYS, PO
     Route: 048
     Dates: start: 20100225, end: 20100312
  10. CARBIDOPA-LEVIDOPA (SINEMET) [Concomitant]
  11. NAPROXEN [Concomitant]
  12. DEXAMETHASONE [Concomitant]
  13. FISH OIL (FISH OIL) [Concomitant]
  14. POLYTHYLENE GLYCOL (MACROGOL) [Concomitant]
  15. METHOCARBAMOL [Concomitant]

REACTIONS (7)
  - SINUS CONGESTION [None]
  - CONSTIPATION [None]
  - DIZZINESS [None]
  - GAIT DISTURBANCE [None]
  - DRY MOUTH [None]
  - FATIGUE [None]
  - ANAEMIA [None]
